FAERS Safety Report 8142943-1 (Version None)
Quarter: 2012Q1

REPORT INFORMATION
  Report Type: 
  Country: None (occurrence: None)
  Receive Date: 20120217
  Receipt Date: 20120207
  Transmission Date: 20120608
  Serious: No
  Sender: FDA-Public Use
  Company Number: US-BIOGENIDEC-2012BI003084

PATIENT
  Sex: Female

DRUGS (1)
  1. TYSABRI [Suspect]
     Indication: MULTIPLE SCLEROSIS
     Route: 042
     Dates: start: 20120116

REACTIONS (10)
  - MUSCULOSKELETAL STIFFNESS [None]
  - BALANCE DISORDER [None]
  - PAIN IN EXTREMITY [None]
  - GAIT DISTURBANCE [None]
  - INFLUENZA LIKE ILLNESS [None]
  - URINE ODOUR ABNORMAL [None]
  - DIZZINESS [None]
  - CHROMATURIA [None]
  - FATIGUE [None]
  - SINUSITIS [None]
